FAERS Safety Report 11532712 (Version 1)
Quarter: 2015Q3

REPORT INFORMATION
  Report Type: Spontaneous
  Country: US (occurrence: US)
  Receive Date: 20150903
  Receipt Date: 20150903
  Transmission Date: 20151125
  Serious: No
  Sender: FDA-Public Use
  Company Number: US-ELI_LILLY_AND_COMPANY-US201203004008

PATIENT
  Sex: Male
  Weight: 158.73 kg

DRUGS (2)
  1. LANTUS [Concomitant]
     Active Substance: INSULIN GLARGINE
     Dosage: UNK
  2. HUMALOG [Suspect]
     Active Substance: INSULIN LISPRO
     Indication: DIABETES MELLITUS
     Dosage: 54 U, TID

REACTIONS (5)
  - Blood glucose increased [Unknown]
  - Neuropathy peripheral [Not Recovered/Not Resolved]
  - Insomnia [Unknown]
  - Pain in extremity [Unknown]
  - Overweight [Unknown]
